FAERS Safety Report 12631228 (Version 2)
Quarter: 2016Q3

REPORT INFORMATION
  Report Type: Spontaneous
  Country: US (occurrence: US)
  Receive Date: 20160808
  Receipt Date: 20160808
  Transmission Date: 20161109
  Serious: No
  Sender: FDA-Public Use
  Company Number: US-BEH-2015052902

PATIENT
  Sex: Male
  Weight: 43.1 kg

DRUGS (11)
  1. DIPHENHYDRAMINE. [Concomitant]
     Active Substance: DIPHENHYDRAMINE
  2. EPIPEN [Concomitant]
     Active Substance: EPINEPHRINE
  3. FOCALIN [Concomitant]
     Active Substance: DEXMETHYLPHENIDATE HYDROCHLORIDE
  4. LMX [Concomitant]
     Active Substance: LIDOCAINE
  5. VITAMIN [Concomitant]
     Active Substance: VITAMINS
  6. ARGININE [Concomitant]
     Active Substance: ARGININE
  7. MAGNESIUM [Concomitant]
     Active Substance: MAGNESIUM
  8. HIZENTRA [Suspect]
     Active Substance: HUMAN IMMUNOGLOBULIN G
     Indication: PRODUCT USED FOR UNKNOWN INDICATION
     Route: 058
  9. NEXIUM [Concomitant]
     Active Substance: ESOMEPRAZOLE MAGNESIUM
  10. ZANTAC [Concomitant]
     Active Substance: RANITIDINE HYDROCHLORIDE
  11. COENZYME Q10 [Concomitant]
     Active Substance: UBIDECARENONE

REACTIONS (1)
  - Fatigue [Unknown]
